FAERS Safety Report 12991556 (Version 2)
Quarter: 2016Q4

REPORT INFORMATION
  Report Type: Spontaneous
  Country: FR (occurrence: FR)
  Receive Date: 20161201
  Receipt Date: 20161219
  Transmission Date: 20170207
  Serious: Yes (Hospitalization)
  Sender: FDA-Public Use
  Company Number: FR-PFIZER INC-2016553118

PATIENT
  Age: 55 Year
  Sex: Male
  Weight: 60 kg

DRUGS (8)
  1. ARTOTEC 50 [Concomitant]
     Dosage: 100 MG, DAILY
     Dates: start: 20140210, end: 20140303
  2. TROXERUTINE [Concomitant]
  3. LYRICA [Suspect]
     Active Substance: PREGABALIN
     Indication: NEURALGIA
     Dosage: 50 MG, DAILY
     Dates: start: 20140210, end: 20140219
  4. LYRICA [Suspect]
     Active Substance: PREGABALIN
     Dosage: 75 MG, DAILY
     Dates: start: 20140220, end: 20140227
  5. LYRICA [Suspect]
     Active Substance: PREGABALIN
     Dosage: 150 MG, DAILY
     Dates: start: 20140228, end: 20140303
  6. THIOCOLCHICOSIDE [Suspect]
     Active Substance: THIOCOLCHICOSIDE
     Dosage: 8 MG, DAILY
     Dates: start: 20140220, end: 20140303
  7. OMIX [Concomitant]
     Active Substance: TAMSULOSIN HYDROCHLORIDE
     Indication: BLADDER DISORDER
     Dosage: UNK
     Dates: start: 1999
  8. EZETROL [Concomitant]
     Active Substance: EZETIMIBE

REACTIONS (2)
  - Pneumothorax [Recovered/Resolved with Sequelae]
  - Nausea [Recovered/Resolved]

NARRATIVE: CASE EVENT DATE: 20140228
